FAERS Safety Report 26198112 (Version 1)
Quarter: 2025Q4

REPORT INFORMATION
  Report Type: Spontaneous
  Country: JP (occurrence: JP)
  Receive Date: 20251224
  Receipt Date: 20251224
  Transmission Date: 20260118
  Serious: Yes (Hospitalization)
  Sender: MERCK SHARP & DOHME LLC
  Company Number: JP-MSD-M2022-08505

PATIENT
  Age: 76 Year
  Sex: Female

DRUGS (4)
  1. KEYTRUDA [Suspect]
     Active Substance: PEMBROLIZUMAB
     Indication: Cervix carcinoma recurrent
     Route: 041
     Dates: start: 20220209, end: 20220209
  2. KEYTRUDA [Suspect]
     Active Substance: PEMBROLIZUMAB
     Indication: Cervix carcinoma recurrent
     Route: 041
     Dates: start: 20220927, end: 20220927
  3. LENVATINIB MESYLATE [Suspect]
     Active Substance: LENVATINIB MESYLATE
     Indication: Cervix carcinoma recurrent
     Route: 048
     Dates: start: 20220209, end: 20220218
  4. LENVATINIB MESYLATE [Suspect]
     Active Substance: LENVATINIB MESYLATE
     Indication: Cervix carcinoma recurrent
     Route: 048
     Dates: start: 20220927

REACTIONS (5)
  - Hypothermia [Recovering/Resolving]
  - Loss of consciousness [Recovering/Resolving]
  - Inappropriate antidiuretic hormone secretion [Recovered/Resolved]
  - Hyponatraemia [Recovering/Resolving]
  - Proctalgia [Recovering/Resolving]

NARRATIVE: CASE EVENT DATE: 20220214
